FAERS Safety Report 9073574 (Version 1)
Quarter: 2013Q1

REPORT INFORMATION
  Report Type: Report from Study
  Country: PR (occurrence: PR)
  Receive Date: 20130129
  Receipt Date: 20130129
  Transmission Date: 20140127
  Serious: No
  Sender: FDA-Public Use
  Company Number: PR-ABBOTT-12P-131-0909078-00

PATIENT
  Sex: Female
  Weight: 59.02 kg

DRUGS (2)
  1. HUMIRA 40 MG/ 0.8 ML PRE-FILLED SYRINGE [Suspect]
     Indication: RHEUMATOID ARTHRITIS
     Route: 058
     Dates: end: 20120223
  2. PREDNISONE [Concomitant]
     Indication: RHEUMATOID ARTHRITIS
     Route: 048
     Dates: start: 201202

REACTIONS (5)
  - Joint swelling [Recovered/Resolved]
  - Lip swelling [Recovered/Resolved]
  - Swelling [Recovered/Resolved]
  - Local swelling [Recovered/Resolved]
  - Local swelling [Recovered/Resolved]
